FAERS Safety Report 4369303-3 (Version None)
Quarter: 2004Q2

REPORT INFORMATION
  Report Type: 
  Country: None (occurrence: None)
  Receive Date: 20040525
  Receipt Date: 20040512
  Transmission Date: 20050107
  Serious: Yes (Other)
  Sender: FDA-Public Use
  Company Number: 2004-DE-02806GD

PATIENT
  Age: 72 Year
  Sex: Male

DRUGS (2)
  1. PRAMIPEXOLE (PRAMIPEXOLE DIHYDROCHLORIDE) [Suspect]
     Indication: PARKINSON'S DISEASE
  2. LITHIUM CARBONATE [Suspect]
     Indication: DEPRESSION

REACTIONS (3)
  - DIFFICULTY IN WALKING [None]
  - DRUG INEFFECTIVE [None]
  - MUSCULAR WEAKNESS [None]
